FAERS Safety Report 13481014 (Version 3)
Quarter: 2018Q1

REPORT INFORMATION
  Report Type: Report from Study
  Country: CA (occurrence: US)
  Receive Date: 20170424
  Receipt Date: 20180117
  Transmission Date: 20180508
  Serious: No
  Sender: FDA-Public Use
  Company Number: CA-AMGEN-USASL2017044890

PATIENT
  Age: 52 Year
  Sex: Male

DRUGS (5)
  1. PLAVIX [Concomitant]
     Active Substance: CLOPIDOGREL BISULFATE
  2. EZETROL [Concomitant]
     Active Substance: EZETIMIBE
  3. SIMVASTATIN. [Concomitant]
     Active Substance: SIMVASTATIN
  4. ASA [Concomitant]
     Active Substance: ASPIRIN
  5. REPATHA [Suspect]
     Active Substance: EVOLOCUMAB
     Indication: TYPE IIA HYPERLIPIDAEMIA
     Dosage: 140 MG/ML, UNK
     Route: 065
     Dates: start: 20170307

REACTIONS (1)
  - Urticaria [Unknown]

NARRATIVE: CASE EVENT DATE: 20170307
